FAERS Safety Report 5917641-2 (Version None)
Quarter: 2008Q4

REPORT INFORMATION
  Report Type: 
  Country: None (occurrence: None)
  Receive Date: 20081010
  Receipt Date: 20081010
  Transmission Date: 20090506
  Serious: Yes (Hospitalization, Other)
  Sender: FDA-Public Use
  Company Number: None

PATIENT
  Age: 50 Year
  Sex: Female
  Weight: 70 kg

DRUGS (3)
  1. GABAPENTIN [Suspect]
     Indication: FIBROMYALGIA
     Dosage: 600MG TABLETS TOTAL 5 TABS A DAY PO
     Route: 048
     Dates: start: 20080520, end: 20080626
  2. GABAPENTIN [Suspect]
     Indication: FIBROMYALGIA
     Dosage: 600MG TABLETS TOTAL 5 TABS A DAY PO
     Route: 048
     Dates: start: 20080824, end: 20080925
  3. GABAPENTIN [Suspect]

REACTIONS (3)
  - CARDIAC DISORDER [None]
  - LUNG DISORDER [None]
  - PRODUCT QUALITY ISSUE [None]
